FAERS Safety Report 7997762-3 (Version None)
Quarter: 2011Q4

REPORT INFORMATION
  Report Type: 
  Country: None (occurrence: None)
  Receive Date: 20111212
  Receipt Date: 20111129
  Transmission Date: 20120403
  Serious: Yes (Other)
  Sender: FDA-Public Use
  Company Number: 2011027956

PATIENT
  Age: 65 Year
  Sex: Female
  Weight: 65.7716 kg

DRUGS (24)
  1. HIZENTRA [Suspect]
  2. PEPCID [Concomitant]
  3. MULTIVITAMIN (ACCOMIN MULTIVITAMIN) [Concomitant]
  4. XANAX [Concomitant]
  5. IMITREX [Concomitant]
  6. CHONDROITIN (CHONDROITIN) [Concomitant]
  7. CIPRO [Concomitant]
  8. SYNTHROID [Concomitant]
  9. VITAMIN D [Concomitant]
  10. HIZENTRA [Suspect]
  11. HIZENTRA [Suspect]
  12. PRAVASTATIN [Concomitant]
  13. ASPIRIN [Concomitant]
  14. PRO AIR HFA (PROCATEROL HYDROCHLORIDE) [Concomitant]
  15. BENICAR HCT [Concomitant]
  16. FISH OIL (FISH OIL) [Concomitant]
  17. MUCINEX [Concomitant]
  18. CALCIUM +D (CALCIUM D3) [Concomitant]
  19. AMOXICILLIN [Concomitant]
  20. HIZENTRA [Suspect]
     Indication: IMMUNODEFICIENCY COMMON VARIABLE
     Dosage: (9 G 1X/WEEK, 1 GM 5 ML VIAL:45 ML IN 1 TO 1.5 HOURS SUBCUTANEOUS), (4 GM 20 ML VIAL SUBCUTANEOUS),
     Route: 058
     Dates: start: 20110316
  21. AMLODIPINE [Concomitant]
  22. LORATADINE [Concomitant]
  23. CLONAZEPAM [Concomitant]
  24. FOSAMAX [Concomitant]

REACTIONS (6)
  - URINARY TRACT INFECTION [None]
  - INFUSION SITE ERYTHEMA [None]
  - CYSTITIS [None]
  - INFUSION SITE SWELLING [None]
  - INFLUENZA LIKE ILLNESS [None]
  - INFUSION SITE EXTRAVASATION [None]
